FAERS Safety Report 22293988 (Version 2)
Quarter: 2025Q4

REPORT INFORMATION
  Report Type: Spontaneous
  Country: BR (occurrence: BR)
  Receive Date: 20230508
  Receipt Date: 20251006
  Transmission Date: 20260118
  Serious: Yes (Other)
  Sender: ASCEND THERAPEUTICS US, LLC
  Company Number: BR-Ascend Therapeutics US, LLC-2141211

PATIENT
  Age: 62 Year
  Sex: Female

DRUGS (4)
  1. ESTROGEL [Suspect]
     Active Substance: ESTRADIOL
     Indication: Hormone replacement therapy
  2. ESTRADIOL [Suspect]
     Active Substance: ESTRADIOL
  3. VAGIFEM [Suspect]
     Active Substance: ESTRADIOL
  4. UTROGESTAN [Suspect]
     Active Substance: PROGESTERONE

REACTIONS (1)
  - Urinary retention [Unknown]
